FAERS Safety Report 4313272-9 (Version None)
Quarter: 2004Q1

REPORT INFORMATION
  Report Type: 
  Country: None (occurrence: None)
  Receive Date: 20040304
  Receipt Date: 20030224
  Transmission Date: 20041129
  Serious: No
  Sender: FDA-Public Use
  Company Number: 2004CG00383

PATIENT
  Age: 62 Year
  Sex: Female

DRUGS (2)
  1. NOLVADEX [Suspect]
     Indication: BREAST CANCER
     Dates: start: 19890101, end: 19940101
  2. NOLVADEX [Suspect]
     Indication: BREAST CANCER
     Dosage: 40 MG DAILY PO
     Route: 048
     Dates: start: 20031223

REACTIONS (2)
  - MYOPIA [None]
  - RETINAL TEAR [None]
